FAERS Safety Report 8064564-1 (Version None)
Quarter: 2012Q1

REPORT INFORMATION
  Report Type: 
  Country: None (occurrence: None)
  Receive Date: 20120123
  Receipt Date: 20120117
  Transmission Date: 20120608
  Serious: Yes (Life-Threatening, Hospitalization)
  Sender: FDA-Public Use
  Company Number: US-ASTRAZENECA-2011SE35564

PATIENT
  Age: 55 Year
  Sex: Female

DRUGS (2)
  1. DILAUDID [Suspect]
     Route: 065
  2. NEXIUM [Suspect]
     Route: 048

REACTIONS (6)
  - CHOLECYSTITIS INFECTIVE [None]
  - MALAISE [None]
  - APPARENT DEATH [None]
  - DYSPEPSIA [None]
  - OROPHARYNGEAL BLISTERING [None]
  - ADVERSE DRUG REACTION [None]
